FAERS Safety Report 15517570 (Version 1)
Quarter: 2018Q4

REPORT INFORMATION
  Report Type: Spontaneous
  Country: US (occurrence: US)
  Receive Date: 20181017
  Receipt Date: 20181017
  Transmission Date: 20190205
  Serious: No
  Sender: FDA-Public Use
  Company Number: US-MYLANLABS-2018M1073420

PATIENT
  Sex: Female

DRUGS (1)
  1. ESTRADIOL TRANSDERMAL SYSTEM [Suspect]
     Active Substance: ESTRADIOL
     Indication: ENDOCRINE DISORDER
     Dosage: UNK

REACTIONS (3)
  - Application site vesicles [Recovered/Resolved]
  - Application site rash [Recovered/Resolved]
  - Product quality issue [Unknown]
